FAERS Safety Report 8773389 (Version 2)
Quarter: 2012Q4

REPORT INFORMATION
  Report Type: 
  Country: GB (occurrence: GB)
  Receive Date: 20120907
  Receipt Date: 20121001
  Transmission Date: 20130627
  Serious: No
  Sender: FDA-Public Use
  Company Number: GB-SANOFI-AVENTIS-2012SA063379

PATIENT
  Age: 86 Year
  Sex: Male
  Weight: 64 kg

DRUGS (7)
  1. DRONEDARONE [Suspect]
     Indication: PAROXYSMAL ATRIAL FIBRILLATION
     Route: 048
     Dates: start: 20120623
  2. WARFARIN [Concomitant]
     Indication: ATRIAL FIBRILLATION
     Route: 048
     Dates: start: 2010
  3. ALENDRONIC ACID [Concomitant]
     Indication: OSTEOPOROSIS
     Route: 048
     Dates: start: 2010
  4. BUMETANIDE [Concomitant]
     Indication: HYPERTENSION
     Route: 048
     Dates: start: 2010
  5. ADCAL-D3 [Concomitant]
     Indication: OSTEOPOROSIS
     Route: 048
     Dates: start: 2010
  6. PARACETAMOL [Concomitant]
     Indication: PAIN
     Route: 048
     Dates: start: 2010
  7. PLANTAGO AFRA SEED/SODIUM CHLORIDE/THIAMINE HYDROCHLORIDE [Concomitant]
     Indication: CONSTIPATION
     Route: 048
     Dates: start: 2010

REACTIONS (1)
  - Enuresis [Not Recovered/Not Resolved]
